FAERS Safety Report 4363151-6 (Version None)
Quarter: 2004Q2

REPORT INFORMATION
  Report Type: 
  Country: None (occurrence: None)
  Receive Date: 20040524
  Receipt Date: 20030605
  Transmission Date: 20050107
  Serious: No
  Sender: FDA-Public Use
  Company Number: US-GLAXOSMITHKLINE-A0412117A

PATIENT
  Age: 74 Year
  Sex: Female

DRUGS (1)
  1. BACTROBAN [Suspect]
     Route: 045

REACTIONS (1)
  - DRUG INEFFECTIVE [None]
